FAERS Safety Report 10102529 (Version 1)
Quarter: 2014Q2

REPORT INFORMATION
  Report Type: Spontaneous
  Country: GB (occurrence: GB)
  Receive Date: 20140424
  Receipt Date: 20140424
  Transmission Date: 20141212
  Serious: Yes (Hospitalization)
  Sender: FDA-Public Use
  Company Number: GB-ACTAVIS-2014-07908

PATIENT
  Age: 67 Year
  Sex: Female

DRUGS (9)
  1. DOXYCYCLINE HYCLATE (UNKNOWN) [Suspect]
     Indication: PRODUCT USED FOR UNKNOWN INDICATION
     Dosage: 200 MG, STAT THEN 100 MG ONCE DAILY FOR 7 DAYS
     Route: 048
     Dates: start: 20120703, end: 20120710
  2. GENTAMICIN [Suspect]
     Indication: PRODUCT USED FOR UNKNOWN INDICATION
     Dosage: 325 MG, UNK (VIALS. STAT DOSE)
     Route: 041
     Dates: start: 20120809
  3. MEROPENEM (UNKNOWN) [Suspect]
     Indication: PNEUMONIA
     Dosage: 1 G, TID
     Route: 041
     Dates: start: 20120819, end: 20120829
  4. MEROPENEM (UNKNOWN) [Suspect]
     Indication: URINARY TRACT INFECTION
  5. PIPERACILLIN-TAZOBACTAM [Suspect]
     Indication: URINARY TRACT INFECTION
     Dosage: 4.5 G, TID
     Route: 041
     Dates: start: 20120907
  6. PIPERACILLIN-TAZOBACTAM [Suspect]
     Dosage: 4.5 G, TID
     Route: 041
     Dates: start: 20120809, end: 20120811
  7. TEICOPLANIN [Suspect]
     Indication: PRODUCT USED FOR UNKNOWN INDICATION
     Dosage: 800 MG, DAILY
     Route: 041
     Dates: start: 20120819, end: 20120824
  8. TRIMETHOPRIM (UNKNOWN) [Suspect]
     Indication: URINARY TRACT INFECTION
     Dosage: 200 MG, BID
     Route: 048
     Dates: start: 20120808, end: 20120811
  9. OMEPRAZOLE [Concomitant]
     Indication: GASTROOESOPHAGEAL REFLUX DISEASE
     Dosage: 20 MG, DAILY (LONG TERM)
     Route: 065

REACTIONS (1)
  - Clostridium difficile infection [Recovered/Resolved]
